FAERS Safety Report 4405704-2 (Version None)
Quarter: 2004Q3

REPORT INFORMATION
  Report Type: 
  Country: None (occurrence: None)
  Receive Date: 20040723
  Receipt Date: 20031119
  Transmission Date: 20050211
  Serious: No
  Sender: FDA-Public Use
  Company Number: US-GLAXOSMITHKLINE-A0440400A

PATIENT
  Age: 56 Year
  Sex: Male

DRUGS (6)
  1. AVANDIA [Suspect]
     Dosage: 4MG PER DAY
     Route: 048
     Dates: start: 20031107
  2. LOTREL [Concomitant]
  3. COZAAR [Concomitant]
  4. FUROSEMIDE [Concomitant]
  5. GLYBURIDE [Concomitant]
  6. ATENOLOL [Concomitant]

REACTIONS (3)
  - COUGH [None]
  - PRODUCTIVE COUGH [None]
  - PYREXIA [None]
